FAERS Safety Report 22036399 (Version 3)
Quarter: 2023Q1

REPORT INFORMATION
  Report Type: Spontaneous
  Country: US (occurrence: US)
  Receive Date: 20230225
  Receipt Date: 20230325
  Transmission Date: 20230417
  Serious: Yes (Hospitalization, Other)
  Sender: FDA-Public Use
  Company Number: US-UNITED THERAPEUTICS-UNT-2023-000580

PATIENT
  Age: 59 Year
  Sex: Female
  Weight: 63.492 kg

DRUGS (8)
  1. REMODULIN [Suspect]
     Active Substance: TREPROSTINIL
     Indication: Pulmonary arterial hypertension
     Dosage: 0.0056 ?G/KG (PHARMACY FILLED WITH 2.8ML/CASSETTE, PUMP RATE 26 MCL/HOUR), CONTINUING
     Route: 058
  2. REMODULIN [Suspect]
     Active Substance: TREPROSTINIL
     Dosage: 0.0058 ?G/KG (PHARMACY PRE-FILLED WITH 2.8 ML PER CASSETTE; REMUNITY PUMP RATE OF 27 MCL/HOUR), CONT
     Route: 058
  3. REMODULIN [Suspect]
     Active Substance: TREPROSTINIL
     Dosage: 0.006 ?G/KG, CONTINUING (PHARMACY PRE-FILLED WITH 2.8 ML PER CASSETTE; PUMP RATE OF 28 MCL/HOUR)
     Route: 058
  4. REMODULIN [Suspect]
     Active Substance: TREPROSTINIL
     Dosage: 0.0051 ?G/KG (PHARMACY FILLED WITH 2.6 ML/CASSETTE AT PUMP RATE OF 24 MCL/HOUR), CONTINUING
     Route: 058
  5. REMODULIN [Suspect]
     Active Substance: TREPROSTINIL
     Dosage: UNK, CONTINUING
     Route: 058
     Dates: start: 20220912
  6. REMODULIN [Suspect]
     Active Substance: TREPROSTINIL
     Indication: Pulmonary arterial hypertension
     Dosage: UNK, CONTINUING
     Route: 058
  7. ADCIRCA [Suspect]
     Active Substance: TADALAFIL
     Indication: Pulmonary arterial hypertension
     Dosage: UNK
     Route: 065
  8. ELIQUIS [Concomitant]
     Active Substance: APIXABAN
     Indication: Product used for unknown indication
     Dosage: UNK
     Route: 065

REACTIONS (30)
  - Headache [Unknown]
  - Vomiting [Unknown]
  - Dehydration [Unknown]
  - Kidney infection [Unknown]
  - Delirium [Unknown]
  - Muscle spasms [Unknown]
  - Device failure [Unknown]
  - Device leakage [Unknown]
  - Device leakage [Unknown]
  - Infusion site pain [Unknown]
  - Abdominal pain [Unknown]
  - Bone pain [Unknown]
  - Arthralgia [Unknown]
  - Seasonal allergy [Unknown]
  - Liver disorder [Unknown]
  - Back pain [Unknown]
  - Infusion site erythema [Not Recovered/Not Resolved]
  - Nausea [Unknown]
  - Diarrhoea [Unknown]
  - Pain [Unknown]
  - Urinary tract infection [Unknown]
  - Device failure [Unknown]
  - Device failure [Unknown]
  - Memory impairment [Unknown]
  - Blood calcium increased [Unknown]
  - Device failure [Unknown]
  - Device malfunction [Unknown]
  - Device failure [Unknown]
  - Device failure [Unknown]
  - Device occlusion [Unknown]

NARRATIVE: CASE EVENT DATE: 20230103
